FAERS Safety Report 8811454 (Version 1)
Quarter: 2012Q4

REPORT INFORMATION
  Report Type: Spontaneous
  Country: US (occurrence: None)
  Receive Date: 20120925
  Receipt Date: 20120925
  Transmission Date: 20130627
  Serious: Yes (Life-Threatening, Hospitalization, Disabling)
  Sender: FDA-Public Use
  Company Number: None

PATIENT
  Age: 78 Year
  Sex: Female
  Weight: 65.32 kg

DRUGS (1)
  1. VICTOZA [Suspect]
     Route: 058
     Dates: start: 20120319, end: 20120720

REACTIONS (4)
  - Nausea [None]
  - Dialysis [None]
  - Blood urea increased [None]
  - Blood creatinine increased [None]
